FAERS Safety Report 5077830-9 (Version None)
Quarter: 2006Q3

REPORT INFORMATION
  Report Type: 
  Country: None (occurrence: None)
  Receive Date: 20060810
  Receipt Date: 20060727
  Transmission Date: 20061208
  Serious: Yes (Hospitalization)
  Sender: FDA-Public Use
  Company Number: DEWYE378227JUL06

PATIENT
  Sex: Female
  Weight: 79 kg

DRUGS (11)
  1. ENBREL [Suspect]
     Indication: RHEUMATOID ARTHRITIS
     Route: 058
     Dates: start: 20050922
  2. METHOTREXATE [Suspect]
     Route: 048
     Dates: start: 20050922
  3. HYDROCHLOROTHIAZIDE [Concomitant]
  4. ZOCOR [Concomitant]
  5. GLUCOPHAGE [Concomitant]
  6. INSULIN HUMAN INJECTION [Concomitant]
  7. PREDNISOLONE [Concomitant]
  8. NAPROXEN [Concomitant]
     Dates: start: 20050902
  9. ACETYLSALICYLIC ACID SRT [Concomitant]
  10. BELOC ZOK [Concomitant]
  11. FOLIC ACID [Concomitant]

REACTIONS (1)
  - GASTRITIS [None]
